FAERS Safety Report 9979374 (Version 1)
Quarter: 2014Q1

REPORT INFORMATION
  Report Type: Report from Study
  Country: US (occurrence: US)
  Receive Date: 20140306
  Receipt Date: 20140306
  Transmission Date: 20141002
  Serious: Yes (Hospitalization)
  Sender: FDA-Public Use
  Company Number: US-ABBVIE-13P-163-1170935-00

PATIENT
  Sex: Male
  Weight: 79.45 kg

DRUGS (22)
  1. HUMIRA [Suspect]
     Indication: PSORIASIS
     Dates: start: 2011
  2. HUMIRA [Suspect]
     Indication: PSORIATIC ARTHROPATHY
  3. FLAXSEED OIL [Concomitant]
     Indication: VITAMIN SUPPLEMENTATION
  4. FISH OIL [Concomitant]
     Indication: VITAMIN SUPPLEMENTATION
  5. VITAMIN C [Concomitant]
     Indication: VITAMIN SUPPLEMENTATION
  6. VITAMIN D [Concomitant]
     Indication: VITAMIN SUPPLEMENTATION
  7. OMEPRAZOLE [Concomitant]
     Indication: DYSPEPSIA
  8. LORATADINE [Concomitant]
     Indication: HYPERSENSITIVITY
  9. COLACE [Concomitant]
  10. MORPHINE SULFATE ER [Concomitant]
     Indication: CONSTIPATION
  11. MORPHINE SULFATE ER [Concomitant]
     Indication: PAIN
  12. CIALIS [Concomitant]
     Indication: BENIGN PROSTATIC HYPERPLASIA
  13. GABAPENTIN [Concomitant]
     Indication: NEURALGIA
  14. WELLBUTRIN SR [Concomitant]
     Indication: DEPRESSION
  15. TRAZODONE [Concomitant]
     Indication: INSOMNIA
  16. METHOTREXATE [Concomitant]
     Indication: PSORIATIC ARTHROPATHY
  17. VENLAFAXINE ER [Concomitant]
     Indication: DEPRESSION
  18. FLEXERIL [Concomitant]
     Indication: MUSCLE RELAXANT THERAPY
  19. SIMVASTATIN [Concomitant]
     Indication: BLOOD CHOLESTEROL INCREASED
  20. FLOMAX [Concomitant]
     Indication: BENIGN PROSTATIC HYPERPLASIA
  21. FOLIC ACID [Concomitant]
     Indication: VITAMIN SUPPLEMENTATION
  22. SULLFASALAZINE [Concomitant]
     Indication: PSORIATIC ARTHROPATHY

REACTIONS (1)
  - Psoriatic arthropathy [Not Recovered/Not Resolved]
